FAERS Safety Report 11133232 (Version 1)
Quarter: 2015Q2

REPORT INFORMATION
  Report Type: Report from Study
  Country: US (occurrence: US)
  Receive Date: 20150522
  Receipt Date: 20150522
  Transmission Date: 20150821
  Serious: Yes (Hospitalization, Other)
  Sender: FDA-Public Use
  Company Number: PHHO2015US009065

PATIENT
  Age: 66 Year
  Sex: Female
  Weight: 76.4 kg

DRUGS (3)
  1. COMPARATOR TEMOZOLOMIDE [Suspect]
     Active Substance: TEMOZOLOMIDE
     Indication: GLIOBLASTOMA
     Dosage: 135 MG, QD
     Route: 048
     Dates: start: 20130318
  2. COMPARATOR TEMOZOLOMIDE [Suspect]
     Active Substance: TEMOZOLOMIDE
     Dosage: 140 MG, QD
     Route: 048
     Dates: start: 20130402, end: 20130415
  3. AFINITOR [Suspect]
     Active Substance: EVEROLIMUS
     Indication: GLIOBLASTOMA
     Dosage: 10 MG, QD
     Route: 048
     Dates: start: 20130318, end: 20130415

REACTIONS (10)
  - Anaemia [Recovered/Resolved]
  - Decreased appetite [None]
  - Platelet count decreased [Unknown]
  - Myelodysplastic syndrome [Unknown]
  - Neutrophil count decreased [Unknown]
  - Facial bones fracture [None]
  - Fall [Recovered/Resolved]
  - Fatigue [Recovered/Resolved]
  - Dehydration [None]
  - Haemorrhage intracranial [None]

NARRATIVE: CASE EVENT DATE: 20130415
